FAERS Safety Report 14972843 (Version 1)
Quarter: 2018Q2

REPORT INFORMATION
  Report Type: Spontaneous
  Country: US (occurrence: US)
  Receive Date: 20180605
  Receipt Date: 20180605
  Transmission Date: 20180711
  Serious: No
  Sender: FDA-Public Use
  Company Number: US-BAYER-2018-100694

PATIENT
  Sex: Male
  Weight: 77 kg

DRUGS (1)
  1. MIRALAX [Suspect]
     Active Substance: POLYETHYLENE GLYCOL 3350
     Route: 065

REACTIONS (3)
  - Multiple allergies [Not Recovered/Not Resolved]
  - Diarrhoea [None]
  - Constipation [Not Recovered/Not Resolved]
